FAERS Safety Report 23684167 (Version 5)
Quarter: 2025Q3

REPORT INFORMATION
  Report Type: Spontaneous
  Country: US (occurrence: US)
  Receive Date: 20240328
  Receipt Date: 20250804
  Transmission Date: 20251021
  Serious: No
  Sender: EISAI
  Company Number: US-Eisai-EC-2024-160372

PATIENT
  Age: 67 Year
  Sex: Female

DRUGS (22)
  1. LEQEMBI [Suspect]
     Active Substance: LECANEMAB-IRMB
     Indication: Dementia Alzheimer^s type
     Dosage: DOSE UNKNOWN.
     Dates: start: 20240212, end: 2024
  2. LEQEMBI [Suspect]
     Active Substance: LECANEMAB-IRMB
     Dosage: DOSE UNKNOWN.
     Dates: start: 2025, end: 20250324
  3. LEQEMBI [Suspect]
     Active Substance: LECANEMAB-IRMB
     Dosage: DOSE UNKNOWN.
     Dates: start: 2025
  4. ARMOUR THYROID [Concomitant]
     Active Substance: THYROID, PORCINE
  5. PANTOPRAZOLE [Concomitant]
     Active Substance: PANTOPRAZOLE
  6. GABAPENTIN [Concomitant]
     Active Substance: GABAPENTIN
  7. VIIBRYD [Concomitant]
     Active Substance: VILAZODONE HYDROCHLORIDE
  8. FAMOTIDINE [Concomitant]
     Active Substance: FAMOTIDINE
  9. BUSPIRONE [Concomitant]
     Active Substance: BUSPIRONE HYDROCHLORIDE
  10. AMITIZA [Concomitant]
     Active Substance: LUBIPROSTONE
  11. CLONAZEPAM [Concomitant]
     Active Substance: CLONAZEPAM
  12. MELOXICAM [Concomitant]
     Active Substance: MELOXICAM
  13. TOVIAZ [Concomitant]
     Active Substance: FESOTERODINE FUMARATE
  14. MIRTAZAPINE [Concomitant]
     Active Substance: MIRTAZAPINE
  15. TRAZODONE [Concomitant]
     Active Substance: TRAZODONE HYDROCHLORIDE
  16. ROSUVASTATIN [Concomitant]
     Active Substance: ROSUVASTATIN
  17. MAGNESIUM [Concomitant]
     Active Substance: MAGNESIUM
  18. COENZYME Q10 [Concomitant]
     Active Substance: DIETARY SUPPLEMENT\UBIDECARENONE
  19. VITAMIN B12 [Concomitant]
     Active Substance: CYANOCOBALAMIN
  20. VITAMIN D3 [Concomitant]
     Active Substance: CHOLECALCIFEROL
  21. POTASSIUM [Concomitant]
     Active Substance: POTASSIUM
  22. COLACE [Concomitant]
     Active Substance: DOCUSATE SODIUM

REACTIONS (5)
  - Diarrhoea [Recovered/Resolved]
  - Infusion site bruising [Recovered/Resolved]
  - Infusion site pain [Recovered/Resolved]
  - Headache [Recovered/Resolved]
  - COVID-19 [Unknown]

NARRATIVE: CASE EVENT DATE: 20240101
